FAERS Safety Report 10235617 (Version 1)
Quarter: 2014Q2

REPORT INFORMATION
  Report Type: Other
  Country: DK (occurrence: TW)
  Receive Date: 20140613
  Receipt Date: 20140613
  Transmission Date: 20141212
  Serious: Yes (Hospitalization)
  Sender: FDA-Public Use
  Company Number: TW-FRI-1000068132

PATIENT
  Age: 24 Year
  Sex: Female

DRUGS (6)
  1. ESCITALOPRAM [Suspect]
     Indication: OBSESSIVE-COMPULSIVE DISORDER
     Dosage: OVERDOSE : 40 MG
  2. CITALOPRAM [Suspect]
     Indication: OBSESSIVE-COMPULSIVE DISORDER
     Dosage: OVERDOSE: 60 MG
  3. ARIPIPRAZOLE [Suspect]
     Indication: OBSESSIVE-COMPULSIVE DISORDER
     Dosage: 20 MG
  4. ARIPIPRAZOLE [Suspect]
     Dosage: 30 MG
  5. SERTRALINE [Concomitant]
     Dosage: 150 MG
  6. VENLAFAXINE [Concomitant]
     Dosage: 225 MG

REACTIONS (4)
  - Sedation [Unknown]
  - Vision blurred [Unknown]
  - Drug ineffective [Recovered/Resolved]
  - Prescribed overdose [Unknown]
